FAERS Safety Report 7884929-8 (Version None)
Quarter: 2011Q4

REPORT INFORMATION
  Report Type: 
  Country: None (occurrence: None)
  Receive Date: 20111102
  Receipt Date: 20111025
  Transmission Date: 20120403
  Serious: Yes (Hospitalization)
  Sender: FDA-Public Use
  Company Number: US-ABBOTT-11P-163-0700550-00

PATIENT
  Sex: Female

DRUGS (4)
  1. NEXIUM [Concomitant]
     Indication: PRODUCT USED FOR UNKNOWN INDICATION
  2. CRESTOR [Concomitant]
     Indication: COLITIS
  3. XXX [Concomitant]
     Indication: PRODUCT USED FOR UNKNOWN INDICATION
  4. HUMIRA [Suspect]
     Indication: PSORIASIS
     Route: 058
     Dates: start: 20080919

REACTIONS (6)
  - ABDOMINAL PAIN UPPER [None]
  - IMPAIRED GASTRIC EMPTYING [None]
  - COLITIS ISCHAEMIC [None]
  - LOSS OF CONSCIOUSNESS [None]
  - ABDOMINAL PAIN [None]
  - VITAMIN D DEFICIENCY [None]
